FAERS Safety Report 5028076-1 (Version None)
Quarter: 2006Q2

REPORT INFORMATION
  Report Type: 
  Country: None (occurrence: None)
  Receive Date: 20060616
  Receipt Date: 20060508
  Transmission Date: 20061013
  Serious: Yes (Hospitalization)
  Sender: FDA-Public Use
  Company Number: US-AMGEN-US178864

PATIENT
  Sex: Male

DRUGS (11)
  1. ARANESP [Suspect]
     Indication: DIALYSIS
  2. HECTORAL [Concomitant]
  3. VENOFER [Concomitant]
  4. DIFLUCAN [Concomitant]
  5. FLAGYL [Concomitant]
  6. PRIMAXIN [Concomitant]
  7. VITAMIN K [Concomitant]
  8. METOCLOPRAMIDE [Concomitant]
  9. NEXIUM [Concomitant]
  10. REGLAN [Concomitant]
  11. PHOSLO [Concomitant]

REACTIONS (2)
  - INFECTION [None]
  - RECTAL HAEMORRHAGE [None]
